FAERS Safety Report 10052730 (Version 1)
Quarter: 2014Q1

REPORT INFORMATION
  Report Type: Spontaneous
  Country: GB (occurrence: None)
  Receive Date: 20140331
  Receipt Date: 20140331
  Transmission Date: 20141002
  Serious: Yes (Other)
  Sender: FDA-Public Use
  Company Number: 2259209

PATIENT
  Age: 52 Year
  Sex: Female

DRUGS (5)
  1. OXALIPLATIN [Suspect]
     Indication: NEOPLASM MALIGNANT
     Dosage: (NOT OTHERWISE SPECIFIED)
     Route: 042
     Dates: start: 20140304, end: 20140304
  2. METHOPROMAZINE MALEATE [Concomitant]
  3. EPIRUBICIN [Concomitant]
  4. DEXAMETHASONE [Concomitant]
  5. GRANISETRON [Concomitant]

REACTIONS (3)
  - Swollen tongue [None]
  - Paraesthesia [None]
  - Hypoaesthesia [None]
